FAERS Safety Report 5928808-1 (Version None)
Quarter: 2008Q4

REPORT INFORMATION
  Report Type: 
  Country: None (occurrence: None)
  Receive Date: 20081020
  Receipt Date: 20080508
  Transmission Date: 20090506
  Serious: Yes (Hospitalization)
  Sender: FDA-Public Use
  Company Number: CL001032008

PATIENT
  Age: 47 Year
  Sex: Male

DRUGS (4)
  1. CIPROFLOXACIN [Suspect]
     Indication: ORCHITIS
     Dosage: 500 MG
  2. CLOZAPINE [Suspect]
  3. AMISULPIRIDE [Concomitant]
  4. LORAZEPAM [Concomitant]

REACTIONS (3)
  - DRUG EFFECT INCREASED [None]
  - DRUG INTERACTION [None]
  - TACHYCARDIA [None]
